FAERS Safety Report 13100124 (Version 3)
Quarter: 2017Q3

REPORT INFORMATION
  Report Type: Spontaneous
  Country: IT (occurrence: IT)
  Receive Date: 20170110
  Receipt Date: 20170929
  Transmission Date: 20171127
  Serious: Yes (Hospitalization)
  Sender: FDA-Public Use
  Company Number: IT-ROCHE-1876893

PATIENT
  Age: 72 Year
  Sex: Male

DRUGS (4)
  1. EXVIERA [Suspect]
     Active Substance: DASABUVIR
     Indication: CHRONIC HEPATITIS C
     Dosage: EXVIERA - 250 MG FILMCOATED TABLET-BLISTER PACK
     Route: 048
     Dates: start: 20160121, end: 20160217
  2. COPEGUS [Suspect]
     Active Substance: RIBAVIRIN
     Indication: CHRONIC HEPATITIS C
     Dosage: 400 MG FILMCOATED TABLETS-14TABLETS IN HDPE BOTTLE AND 200 MG FILMCOATED TABLETS 42 TABLETS IN BOTTL
     Route: 048
     Dates: start: 20160121, end: 20160217
  3. SONGAR [Concomitant]
     Active Substance: TRIAZOLAM
     Indication: INSOMNIA
     Dosage: TAKEN BY HIS OWN INITIATIVE WITHOUT EVER HAVING INFORMED THE PRESCRIBING DOCTOR OF THE ANTIVIRAL THE
     Route: 065
  4. VIEKIRAX [Suspect]
     Active Substance: OMBITASVIR\PARITAPREVIR\RITONAVIR
     Indication: CHRONIC HEPATITIS C
     Dosage: 12.5 MG/75 MG/50 MG FILMCOATED TABLET-BLISTER PACK
     Route: 048
     Dates: start: 20160121, end: 20160217

REACTIONS (1)
  - Delusion [Recovered/Resolved]

NARRATIVE: CASE EVENT DATE: 20160214
